FAERS Safety Report 8795811 (Version 1)
Quarter: 2012Q4

REPORT INFORMATION
  Report Type: 
  Country: US (occurrence: US)
  Receive Date: 20120920
  Receipt Date: 20120920
  Transmission Date: 20130627
  Serious: Yes (Other)
  Sender: FDA-Public Use
  Company Number: US-PFIZER INC-2012228472

PATIENT
  Sex: Male

DRUGS (1)
  1. DIFLUCAN [Suspect]
     Indication: TINEA INFECTION
     Dosage: 100 mg, once a day
     Route: 048
     Dates: start: 20120911, end: 20120913

REACTIONS (3)
  - Urticaria [Not Recovered/Not Resolved]
  - Skin tightness [Not Recovered/Not Resolved]
  - Local swelling [Not Recovered/Not Resolved]
